FAERS Safety Report 4322216-5 (Version None)
Quarter: 2004Q1

REPORT INFORMATION
  Report Type: 
  Country: None (occurrence: None)
  Receive Date: 20040319
  Receipt Date: 20040305
  Transmission Date: 20041129
  Serious: Yes (Disabling, Other)
  Sender: FDA-Public Use
  Company Number: 2004004001

PATIENT
  Age: 54 Year
  Sex: Male
  Weight: 77.1115 kg

DRUGS (19)
  1. ZOLOFT [Suspect]
     Indication: ANXIETY
     Dosage: 50 MG (DAILY), ORAL
     Route: 048
     Dates: start: 20030904
  2. ZOLOFT [Suspect]
     Indication: PANIC ATTACK
     Dosage: 50 MG (DAILY), ORAL
     Route: 048
     Dates: start: 20030904
  3. HYDROXYZINE HCL [Suspect]
     Indication: AGITATION
     Dosage: UNK (UNKNOWN) UNKNOWN
     Route: 065
     Dates: start: 20031226, end: 20040105
  4. HYDROXYZINE HCL [Suspect]
     Indication: ANXIETY
     Dosage: UNK (UNKNOWN) UNKNOWN
     Route: 065
     Dates: start: 20031226, end: 20040105
  5. HYDROXYZINE HCL [Suspect]
     Indication: HYPERHIDROSIS
     Dosage: UNK (UNKNOWN) UNKNOWN
     Route: 065
     Dates: start: 20031226, end: 20040105
  6. HYDROXYZINE HCL [Suspect]
     Indication: MUSCLE TWITCHING
     Dosage: UNK (UNKNOWN) UNKNOWN
     Route: 065
     Dates: start: 20031226, end: 20040105
  7. HYDROXYZINE HCL [Suspect]
     Indication: NERVOUSNESS
     Dosage: UNK (UNKNOWN) UNKNOWN
     Route: 065
     Dates: start: 20031226, end: 20040105
  8. ALPRAZOLAM [Suspect]
     Indication: AGITATION
     Dosage: UNK (UNKNOWN), UNKNOWN
     Route: 065
     Dates: start: 20030904, end: 20030929
  9. ALPRAZOLAM [Suspect]
     Indication: ANXIETY
     Dosage: UNK (UNKNOWN), UNKNOWN
     Route: 065
     Dates: start: 20030904, end: 20030929
  10. ALPRAZOLAM [Suspect]
     Indication: HYPERHIDROSIS
     Dosage: UNK (UNKNOWN), UNKNOWN
     Route: 065
     Dates: start: 20030904, end: 20030929
  11. ALPRAZOLAM [Suspect]
     Indication: MUSCLE TWITCHING
     Dosage: UNK (UNKNOWN), UNKNOWN
     Route: 065
     Dates: start: 20030904, end: 20030929
  12. ALPRAZOLAM [Suspect]
     Indication: NERVOUSNESS
     Dosage: UNK (UNKNOWN), UNKNOWN
     Route: 065
     Dates: start: 20030904, end: 20030929
  13. ALPRAZOLAM [Suspect]
     Indication: TREMOR
     Dosage: UNK (UNKNOWN), UNKNOWN
     Route: 065
     Dates: start: 20030904, end: 20030929
  14. LORAZEPAM [Suspect]
     Indication: AGITATION
     Dosage: UNK (UNKNOWN), UNKNOWN
     Route: 065
     Dates: start: 20030901, end: 20031201
  15. LORAZEPAM [Suspect]
     Indication: HYPERHIDROSIS
     Dosage: UNK (UNKNOWN), UNKNOWN
     Route: 065
     Dates: start: 20030901, end: 20031201
  16. LORAZEPAM [Suspect]
     Indication: MUSCLE TWITCHING
     Dosage: UNK (UNKNOWN), UNKNOWN
     Route: 065
     Dates: start: 20030901, end: 20031201
  17. LORAZEPAM [Suspect]
     Indication: NERVOUSNESS
     Dosage: UNK (UNKNOWN), UNKNOWN
     Route: 065
     Dates: start: 20030901, end: 20031201
  18. LORAZEPAM [Suspect]
     Indication: TREMOR
     Dosage: UNK (UNKNOWN), UNKNOWN
     Route: 065
     Dates: start: 20030901, end: 20031201
  19. ATENOLOL [Concomitant]

REACTIONS (12)
  - AGITATION [None]
  - COELIAC DISEASE [None]
  - CONDITION AGGRAVATED [None]
  - DEPRESSION [None]
  - DIARRHOEA [None]
  - DYSKINESIA [None]
  - HYPERHIDROSIS [None]
  - MOOD ALTERED [None]
  - MUSCLE TWITCHING [None]
  - NERVOUSNESS [None]
  - TREMOR [None]
  - VISION BLURRED [None]
